FAERS Safety Report 24126766 (Version 1)
Quarter: 2024Q3

REPORT INFORMATION
  Report Type: Spontaneous
  Country: RU (occurrence: RU)
  Receive Date: 20240723
  Receipt Date: 20240723
  Transmission Date: 20241017
  Serious: Yes (Other)
  Sender: BAYER
  Company Number: None

PATIENT
  Age: 3 Year
  Sex: Male

DRUGS (1)
  1. YAZ [Suspect]
     Active Substance: DROSPIRENONE\ETHINYL ESTRADIOL
     Indication: Accidental poisoning
     Dosage: 5 DF
     Route: 048
     Dates: start: 20240703, end: 20240703

REACTIONS (1)
  - Accidental poisoning [None]

NARRATIVE: CASE EVENT DATE: 20240703
